FAERS Safety Report 11588429 (Version 1)
Quarter: 2015Q4

REPORT INFORMATION
  Report Type: Spontaneous
  Country: US (occurrence: None)
  Receive Date: 20151001
  Receipt Date: 20151001
  Transmission Date: 20160304
  Serious: No
  Sender: FDA-Public Use
  Company Number: None

PATIENT
  Age: 67 Year
  Sex: Male
  Weight: 116.7 kg

DRUGS (1)
  1. SULFAMETHOXAZOLE/TRIMETHOPRIM [Suspect]
     Active Substance: SULFAMETHOXAZOLE\TRIMETHOPRIM
     Indication: INFECTION
     Dosage: 2 TABLETS, UD
     Route: 048
     Dates: start: 20150503, end: 20150506

REACTIONS (6)
  - Swelling [None]
  - Genital pain [None]
  - Rash [None]
  - Wrong drug administered [None]
  - Skin exfoliation [None]
  - Tenderness [None]

NARRATIVE: CASE EVENT DATE: 20150506
